FAERS Safety Report 12771684 (Version 4)
Quarter: 2017Q2

REPORT INFORMATION
  Report Type: Report from Study
  Country: FR (occurrence: FR)
  Receive Date: 20160922
  Receipt Date: 20170406
  Transmission Date: 20170830
  Serious: Yes (Hospitalization)
  Sender: FDA-Public Use
  Company Number: FR-VIFOR (INTERNATIONAL) INC.-VIT-2016-05360

PATIENT
  Age: 73 Year
  Sex: Male

DRUGS (19)
  1. PANTOPRAZOLE [Concomitant]
     Active Substance: PANTOPRAZOLE
     Indication: GASTROINTESTINAL HAEMORRHAGE
     Dosage: ONE TABLET IN EVENING
     Dates: start: 20160407, end: 20160707
  2. RENVELA [Concomitant]
     Active Substance: SEVELAMER CARBONATE
     Indication: HYPERPHOSPHATAEMIA
     Dosage: ONE SACHET AT MID-DAY AND IN THE EVENING
     Dates: start: 20160510, end: 20160707
  3. COUMADINE [Concomitant]
     Active Substance: WARFARIN SODIUM
     Dosage: 1 TABLET ON M,W,F AND 1? TABLETS ON THE OTHER DAYS OF WEEK
  4. DIAMICRON [Concomitant]
     Active Substance: GLICLAZIDE
     Dosage: EVERY MORNING
  5. CADUET [Concomitant]
     Active Substance: AMLODIPINE BESYLATE\ATORVASTATIN CALCIUM
     Dosage: 10/10 EVERY EVENING
  6. RAMIPRIL. [Concomitant]
     Active Substance: RAMIPRIL
     Dosage: 1 TABLET IN THE MORNING AND IN THE EVENING
  7. LASILIX [Concomitant]
     Active Substance: FUROSEMIDE
     Dosage: 500 ? TABLET IN THE MORNING
  8. JANUVIA [Concomitant]
     Active Substance: SITAGLIPTIN PHOSPHATE
     Dosage: EVERY MORNING
  9. RILMENIDINE [Concomitant]
     Active Substance: RILMENIDINE
     Dosage: 1 TABLET IN THE MORNING AND IN THE EVENING
  10. ZYMAD [Concomitant]
     Active Substance: CHOLECALCIFEROL
     Indication: HYPERPARATHYROIDISM
     Dosage: 1 AMP
     Dates: start: 20140127
  11. COUMADINE [Concomitant]
     Active Substance: WARFARIN SODIUM
     Indication: ARRHYTHMIA
     Dates: start: 20150601, end: 20160707
  12. VELPHORO [Suspect]
     Active Substance: FERRIC OXYHYDROXIDE
     Indication: HYPERPHOSPHATAEMIA
     Route: 048
     Dates: start: 20160707
  13. PANTOPRAZOLE [Concomitant]
     Active Substance: PANTOPRAZOLE
     Dates: start: 20160707
  14. RENVELA [Concomitant]
     Active Substance: SEVELAMER CARBONATE
     Dates: start: 20160707
  15. VENOFER [Suspect]
     Active Substance: IRON SUCROSE
     Indication: GASTROINTESTINAL HAEMORRHAGE
     Dates: start: 20160322, end: 20160322
  16. VENOFER [Suspect]
     Active Substance: IRON SUCROSE
     Dates: start: 20160510, end: 20160804
  17. COUMADINE [Concomitant]
     Active Substance: WARFARIN SODIUM
     Dates: start: 20160707
  18. RAMIPRIL. [Concomitant]
     Active Substance: RAMIPRIL
     Dosage: 1 TABLET IN THE MORNING
  19. MIRCERA [Suspect]
     Active Substance: METHOXY POLYETHYLENE GLYCOL-EPOETIN BETA
     Indication: ANAEMIA
     Dates: start: 20151217, end: 20160606

REACTIONS (1)
  - Gastroenteritis [Recovered/Resolved]

NARRATIVE: CASE EVENT DATE: 20160828
